FAERS Safety Report 9229098 (Version 1)
Quarter: 2013Q2

REPORT INFORMATION
  Report Type: Spontaneous
  Country: US (occurrence: US)
  Receive Date: 20130412
  Receipt Date: 20130412
  Transmission Date: 20140414
  Serious: Yes (Hospitalization)
  Sender: FDA-Public Use
  Company Number: US-ASTRAZENECA-2013SE21796

PATIENT
  Age: 65 Year
  Sex: Male

DRUGS (7)
  1. SYMBICORT [Suspect]
     Dosage: 80/4.5 MCG, 2 PUFFS, BID
     Route: 055
  2. FLONASE [Concomitant]
  3. LEVOXYL [Concomitant]
  4. LIPITOR [Concomitant]
  5. PRESTIQ [Concomitant]
  6. TESTIM GEL [Concomitant]
  7. CIALIS [Concomitant]

REACTIONS (2)
  - Hypertensive crisis [Unknown]
  - Transient ischaemic attack [Unknown]
